FAERS Safety Report 8604303-6 (Version None)
Quarter: 2012Q3

REPORT INFORMATION
  Report Type: 
  Country: None (occurrence: None)
  Receive Date: 20120808
  Receipt Date: 20120808
  Transmission Date: 20120928
  Serious: No
  Sender: FDA-Public Use
  Company Number: None

PATIENT
  Sex: Female

DRUGS (4)
  1. LORAZEPAM 07/26/11 TO PRESENT [Concomitant]
  2. SEROQUEL XR [Suspect]
     Indication: BIPOLAR I DISORDER
     Dosage: 300-750 MG DAILY PO
     Route: 048
     Dates: start: 20110721, end: 20110728
  3. SEROQUEL [Suspect]
     Indication: BIPOLAR I DISORDER
     Dosage: 50-150 MG DAILY PO
     Route: 048
     Dates: start: 20110729, end: 20110816
  4. DEPAKOTE ER 2000 - PRESENT [Concomitant]

REACTIONS (1)
  - NEUTROPENIA [None]
